FAERS Safety Report 6147004-9 (Version None)
Quarter: 2009Q2

REPORT INFORMATION
  Report Type: 
  Country: None (occurrence: None)
  Receive Date: 20090407
  Receipt Date: 20090326
  Transmission Date: 20091009
  Serious: Yes (Other)
  Sender: FDA-Public Use
  Company Number: FR-ELI_LILLY_AND_COMPANY-FR200903007347

PATIENT
  Sex: Male

DRUGS (10)
  1. XIGRIS [Suspect]
     Indication: SEPSIS
     Dosage: 24 MCG/KG (20MG + 5MG) , EVERY HOUR
     Route: 042
     Dates: start: 20090326, end: 20090326
  2. DOBUTAMINE HCL [Concomitant]
     Dosage: UNK, UNKNOWN
     Route: 065
  3. N.A [Concomitant]
     Dosage: UNK, UNKNOWN
     Route: 065
  4. CORDARONE [Concomitant]
     Dosage: UNK, UNKNOWN
     Route: 065
  5. FENTANYL [Concomitant]
     Dosage: UNK, UNKNOWN
     Route: 065
  6. HYPNOVEL [Concomitant]
     Dosage: UNK, UNKNOWN
     Route: 065
  7. AUGMENTIN '125' [Concomitant]
     Dosage: UNK, UNKNOWN
     Route: 065
  8. TAVANIC [Concomitant]
     Dosage: UNK, UNKNOWN
     Route: 065
  9. CORTICOSTEROIDS [Concomitant]
     Dosage: UNK, UNKNOWN
     Route: 065
  10. NEXIUM [Concomitant]
     Dosage: UNK, UNKNOWN
     Route: 065

REACTIONS (1)
  - ACUTE CORONARY SYNDROME [None]
